FAERS Safety Report 7014621-3 (Version None)
Quarter: 2010Q3

REPORT INFORMATION
  Report Type: 
  Country: None (occurrence: None)
  Receive Date: 20100927
  Receipt Date: 20100917
  Transmission Date: 20110219
  Serious: No
  Sender: FDA-Public Use
  Company Number: JP-ROCHE-715648

PATIENT
  Sex: Male
  Weight: 41 kg

DRUGS (9)
  1. TOCILIZUMAB [Suspect]
     Indication: RHEUMATOID ARTHRITIS
     Route: 041
     Dates: start: 20090908, end: 20090908
  2. TOCILIZUMAB [Suspect]
     Route: 041
     Dates: start: 20090929, end: 20090929
  3. TOCILIZUMAB [Suspect]
     Route: 041
     Dates: start: 20091027, end: 20091027
  4. TOCILIZUMAB [Suspect]
     Route: 041
     Dates: start: 20100126, end: 20100126
  5. TOCILIZUMAB [Suspect]
     Route: 041
     Dates: start: 20100302
  6. TAKEPRON [Concomitant]
     Route: 048
  7. SOLANTAL [Concomitant]
     Dosage: DRUG: SOLANTAL(TIARAMIDE HYDROCHLORIDE)
     Route: 048
  8. SELBEX [Concomitant]
     Route: 048
  9. LOXONIN [Concomitant]
     Dosage: DRUG: LOXONIN(LOXOPROFEN SODIUM)
     Route: 048

REACTIONS (1)
  - PANCYTOPENIA [None]
